FAERS Safety Report 20096073 (Version 1)
Quarter: 2021Q4

REPORT INFORMATION
  Report Type: Spontaneous
  Country: FR (occurrence: FR)
  Receive Date: 20211122
  Receipt Date: 20211122
  Transmission Date: 20220304
  Serious: Yes (Hospitalization, Congenital Anomaly)
  Sender: FDA-Public Use
  Company Number: None

PATIENT
  Age: 1 Year
  Weight: 3 kg

DRUGS (1)
  1. CYMBALTA [Suspect]
     Active Substance: DULOXETINE HYDROCHLORIDE
     Indication: Maternal exposure during pregnancy
     Dosage: 60 MG, DAILY
     Route: 064
     Dates: start: 202009, end: 20210606

REACTIONS (7)
  - Neurological examination abnormal [Recovering/Resolving]
  - Congenital jaw malformation [Not Recovered/Not Resolved]
  - Cardiomyopathy [Recovered/Resolved]
  - Poor feeding infant [Recovering/Resolving]
  - Drug withdrawal syndrome neonatal [Recovering/Resolving]
  - Hypotonia neonatal [Recovering/Resolving]
  - Foetal exposure during pregnancy [Not Recovered/Not Resolved]

NARRATIVE: CASE EVENT DATE: 20210606
